FAERS Safety Report 6956623-9 (Version None)
Quarter: 2010Q3

REPORT INFORMATION
  Report Type: 
  Country: None (occurrence: None)
  Receive Date: 20100830
  Receipt Date: 20100818
  Transmission Date: 20110219
  Serious: Yes (Other)
  Sender: FDA-Public Use
  Company Number: US-PFIZER INC-2010104874

PATIENT
  Sex: Male

DRUGS (13)
  1. GEODON [Suspect]
     Dosage: 20MG IN THE MORNING AND 60MG IN THE EVENING
     Route: 048
     Dates: start: 20090101
  2. LORAZEPAM [Concomitant]
     Dosage: UNK
  3. PROZAC [Concomitant]
     Dosage: UNK
  4. MIRTAZAPINE [Concomitant]
     Dosage: UNK
  5. LIPITOR [Concomitant]
     Dosage: UNK
  6. IBANDRONATE SODIUM [Concomitant]
     Dosage: UNK
  7. MULTI-VITAMINS [Concomitant]
     Dosage: UNK
  8. VITAMIN B6 [Concomitant]
     Dosage: UNK
  9. ASACOL [Concomitant]
     Dosage: UNK
  10. CANASA [Concomitant]
     Dosage: UNK
  11. ACETYLSALICYLIC ACID [Concomitant]
     Dosage: UNK
  12. MONTELUKAST [Concomitant]
     Dosage: UNK
  13. NASONEX [Concomitant]
     Dosage: UNK

REACTIONS (1)
  - TARDIVE DYSKINESIA [None]
